FAERS Safety Report 7283435-1 (Version None)
Quarter: 2011Q1

REPORT INFORMATION
  Report Type: 
  Country: None (occurrence: None)
  Receive Date: 20110204
  Receipt Date: 20110204
  Transmission Date: 20110831
  Serious: Yes (Other)
  Sender: FDA-Public Use
  Company Number: None

PATIENT
  Age: 49 Year
  Sex: Male
  Weight: 58.9676 kg

DRUGS (1)
  1. CHANTIX [Suspect]
     Indication: SMOKING CESSATION THERAPY
     Dosage: STARTING WEEK 0.5MG. 1 PILL EVERY DAY 1ST 3 DAYS; CONTINUING WEEKS 1 MG. 2 PILLS DAILY FOR 7 DAYS
     Dates: start: 20101204

REACTIONS (1)
  - CEREBROVASCULAR ACCIDENT [None]
